FAERS Safety Report 5512793-0 (Version None)
Quarter: 2007Q4

REPORT INFORMATION
  Report Type: 
  Country: None (occurrence: None)
  Receive Date: 20071108
  Receipt Date: 20071025
  Transmission Date: 20080405
  Serious: Yes (Disabling)
  Sender: FDA-Public Use
  Company Number: 163236ISR

PATIENT
  Age: 72 Year
  Sex: Female

DRUGS (2)
  1. MIRTAZAPINE [Suspect]
     Indication: AGITATED DEPRESSION
     Dosage: (30 MG) ORAL
     Route: 048
     Dates: start: 20070907
  2. RISPERIDONE [Suspect]
     Indication: AGITATED DEPRESSION
     Dosage: (1 MG) ORAL
     Route: 048
     Dates: start: 20070907

REACTIONS (1)
  - CEREBROVASCULAR ACCIDENT [None]
